FAERS Safety Report 18900463 (Version 1)
Quarter: 2021Q1

REPORT INFORMATION
  Report Type: Spontaneous
  Country: CH (occurrence: CH)
  Receive Date: 20210217
  Receipt Date: 20210217
  Transmission Date: 20210420
  Serious: Yes (Hospitalization)
  Sender: FDA-Public Use
  Company Number: CH-JNJFOC-20210214229

PATIENT
  Age: 33 Year
  Sex: Male

DRUGS (10)
  1. AUGMENTINE [AMOXICILLIN TRIHYDRATE;CLAVULANATE POTASSIUM] [Suspect]
     Active Substance: AMOXICILLIN\CLAVULANATE POTASSIUM
     Indication: PNEUMONIA
     Dates: start: 20201214, end: 20201220
  2. NOZINAN [LEVOMEPROMAZINE] [Suspect]
     Active Substance: LEVOMEPROMAZINE
     Indication: ANXIETY
     Dosage: AS NECESSARY
     Route: 065
     Dates: start: 202011, end: 202101
  3. HALDOL [Suspect]
     Active Substance: HALOPERIDOL
     Indication: PRODUCT USED FOR UNKNOWN INDICATION
     Route: 048
     Dates: start: 202011, end: 20210107
  4. ABILIFY [Suspect]
     Active Substance: ARIPIPRAZOLE
     Indication: PRODUCT USED FOR UNKNOWN INDICATION
     Route: 030
     Dates: start: 201906, end: 20210107
  5. INEGY [Concomitant]
     Active Substance: EZETIMIBE\SIMVASTATIN
     Dates: end: 202101
  6. IRFEN [Concomitant]
     Active Substance: IBUPROFEN
     Dosage: IN TOTAL
     Dates: start: 202101, end: 202101
  7. ANTABUS [Suspect]
     Active Substance: DISULFIRAM
     Indication: PRODUCT USED FOR UNKNOWN INDICATION
     Dates: end: 202101
  8. PARACETAMOL [Concomitant]
     Active Substance: ACETAMINOPHEN
     Dosage: AS NECESSARY
     Dates: start: 202012, end: 202101
  9. TOPAMAX [Suspect]
     Active Substance: TOPIRAMATE
     Indication: PRODUCT USED FOR UNKNOWN INDICATION
     Route: 065
     Dates: end: 202101
  10. TRITTICO [Suspect]
     Active Substance: TRAZODONE HYDROCHLORIDE
     Indication: PRODUCT USED FOR UNKNOWN INDICATION
     Dates: end: 202101

REACTIONS (4)
  - Bradycardia [Recovered/Resolved]
  - Syncope [Recovered/Resolved]
  - Extrapyramidal disorder [Unknown]
  - Mixed liver injury [Not Recovered/Not Resolved]

NARRATIVE: CASE EVENT DATE: 202101
